FAERS Safety Report 8235413 (Version 7)
Quarter: 2014Q2

REPORT INFORMATION
  Report Type: Spontaneous
  Country: US (occurrence: US)
  Receive Date: 20111108
  Receipt Date: 20140425
  Transmission Date: 20141212
  Serious: Yes (Congenital Anomaly, Other)
  Sender: FDA-Public Use
  Company Number: US-PFIZER INC-2011270397

PATIENT
  Sex: Female

DRUGS (5)
  1. ZOLOFT [Suspect]
     Dosage: 50 MG, UNK
     Route: 064
     Dates: start: 20050830, end: 20060301
  2. EFEXOR XR [Concomitant]
     Dosage: 150 MG, UNK
     Route: 064
     Dates: start: 20050616
  3. PRENATAL VITAMINS [Concomitant]
     Dosage: UNK
     Route: 064
     Dates: start: 20050714
  4. TIZANIDINE [Concomitant]
     Dosage: 4 MG, UNK
     Route: 064
     Dates: start: 20051022, end: 200511
  5. TIZANIDINE [Concomitant]
     Dosage: 2 MG, UNK
     Route: 064
     Dates: start: 20051107

REACTIONS (5)
  - Maternal exposure timing unspecified [Unknown]
  - Craniosynostosis [Unknown]
  - Ventricular septal defect [Unknown]
  - Transposition of the great vessels [Unknown]
  - Double outlet right ventricle [Unknown]
